FAERS Safety Report 13883348 (Version 1)
Quarter: 2017Q3

REPORT INFORMATION
  Report Type: Spontaneous
  Country: DE (occurrence: DE)
  Receive Date: 20170818
  Receipt Date: 20170818
  Transmission Date: 20171127
  Serious: Yes (Disabling, Other)
  Sender: FDA-Public Use
  Company Number: DE-PFIZER INC-2017346070

PATIENT
  Age: 69 Year
  Sex: Male
  Weight: 133 kg

DRUGS (12)
  1. MOXONIDIN HEXAL [Concomitant]
     Dosage: 0.3 MG, 2X/DAY
     Route: 048
  2. ATORVASTATIN 1 A PHARMA [Concomitant]
     Dosage: 21.65 MG, 1X/DAY
     Route: 048
  3. TOUJEO [Concomitant]
     Active Substance: INSULIN GLARGINE
     Dosage: 80 IU, 1X/DAY
     Route: 058
  4. EXFORGE 5 MG/160 MG [Concomitant]
     Dosage: 1 DF, 2X/DAY
     Route: 048
  5. PREGABALIN 1A PHARMA [Concomitant]
     Active Substance: PREGABALIN
     Dosage: 100 MG, 2X/DAY
     Route: 048
  6. PROPRANOLOL AL [Concomitant]
     Dosage: 40 MG, 2X/DAY
     Route: 048
  7. PRIMIDON HOLSTEN [Concomitant]
     Dosage: 62.5 MG, 1X/DAY
     Route: 048
  8. VIAGRA [Suspect]
     Active Substance: SILDENAFIL CITRATE
     Indication: ERECTILE DYSFUNCTION
     Dosage: 100 MG, EVERY 3 WEEKS
     Route: 048
     Dates: start: 201703, end: 20170702
  9. LIPROLOG [Concomitant]
     Active Substance: INSULIN LISPRO
     Dosage: 46-40-46 IU
     Route: 058
  10. ALLOPURINOL STADA [Concomitant]
     Dosage: 300 MG, 1X/DAY
     Route: 048
  11. ASS 1 A PHARMA [Concomitant]
     Dosage: 100 MG, 1X/DAY
     Route: 048
  12. METFORMIN [Concomitant]
     Active Substance: METFORMIN HYDROCHLORIDE
     Dosage: 1000 MG, 2X/DAY
     Route: 048

REACTIONS (1)
  - Optic ischaemic neuropathy [Not Recovered/Not Resolved]

NARRATIVE: CASE EVENT DATE: 20170704
